FAERS Safety Report 5661258-4 (Version None)
Quarter: 2008Q1

REPORT INFORMATION
  Report Type: 
  Country: None (occurrence: None)
  Receive Date: 20080312
  Receipt Date: 20080307
  Transmission Date: 20080703
  Serious: Yes (Disabling)
  Sender: FDA-Public Use
  Company Number: B0510227A

PATIENT
  Age: 40 Year
  Sex: Female
  Weight: 76 kg

DRUGS (3)
  1. WELLBUTRIN [Suspect]
     Indication: DEPRESSION
     Dosage: 150MG PER DAY
     Route: 048
  2. LORAMET [Concomitant]
     Indication: INSOMNIA
     Route: 048
     Dates: start: 20050304
  3. XANAX [Concomitant]

REACTIONS (1)
  - MUSCULOSKELETAL STIFFNESS [None]
